FAERS Safety Report 16285472 (Version 1)
Quarter: 2019Q2

REPORT INFORMATION
  Report Type: Spontaneous
  Country: JP (occurrence: JP)
  Receive Date: 20190508
  Receipt Date: 20190508
  Transmission Date: 20190711
  Serious: Yes (Other)
  Sender: FDA-Public Use
  Company Number: JP-FRESENIUS KABI-FK201905182

PATIENT
  Age: 41 Year
  Sex: Male

DRUGS (5)
  1. METHYLPREDNISOLONE (MANUFACTURER UNKNOWN) [Suspect]
     Active Substance: METHYLPREDNISOLONE
     Dosage: 3-DAY CYCLE OF METHYLPREDNISOLONE 1,000 MG EVERY OTHER WEEK
     Route: 042
  2. PREDNISOLONE. [Suspect]
     Active Substance: PREDNISOLONE
     Dosage: SLOWLY TAPERED BY 5MG EVERY 2 WEEKS TO A DOSE OF 20 MG
     Route: 048
  3. PREDNISOLONE. [Suspect]
     Active Substance: PREDNISOLONE
     Dosage: SLOWLY TAPERED BY 10MG EVERY 2 WEEKS TO A DOSE OF 30 MG
     Route: 048
  4. METHYLPREDNISOLONE (MANUFACTURER UNKNOWN) [Suspect]
     Active Substance: METHYLPREDNISOLONE
     Indication: CHRONIC LYMPHOCYTIC INFLAMMATION WITH PONTINE PERIVASCULAR ENHANCEMENT RESPONSIVE TO STEROIDS
     Dosage: 3-DAY CYCLE OF METHYLPREDNISOLONE 1,000 MG EVERY OTHER WEEK
     Route: 042
  5. PREDNISOLONE. [Suspect]
     Active Substance: PREDNISOLONE
     Indication: CHRONIC LYMPHOCYTIC INFLAMMATION WITH PONTINE PERIVASCULAR ENHANCEMENT RESPONSIVE TO STEROIDS
     Route: 048

REACTIONS (2)
  - Treatment failure [Unknown]
  - Drug resistance [Unknown]
